FAERS Safety Report 23460288 (Version 2)
Quarter: 2024Q1

REPORT INFORMATION
  Report Type: Spontaneous
  Country: GB (occurrence: GB)
  Receive Date: 20240131
  Receipt Date: 20240206
  Transmission Date: 20240409
  Serious: Yes (Hospitalization, Other)
  Sender: FDA-Public Use
  Company Number: GB-BAXTER-2023BAX037121

PATIENT
  Sex: Male

DRUGS (4)
  1. SODIUM CHLORIDE [Suspect]
     Active Substance: SODIUM CHLORIDE
     Indication: Medication dilution
     Dosage: AT AN UNSPECIFIED DOSE 6 WEEKLY
     Route: 042
     Dates: start: 20230112
  2. WATER FOR INJECTION [Suspect]
     Active Substance: WATER
     Indication: Medication dilution
     Dosage: AT AN UNSPECIFIED DOSE 6 WEEKLY
     Route: 042
     Dates: start: 20230112
  3. INFLIXIMAB [Suspect]
     Active Substance: INFLIXIMAB
     Indication: Crohn^s disease
     Dosage: 320 MG 6 WEEKLY (STRENGTH: 5 MG/KG) (REMSIMA 1 MG)
     Route: 042
     Dates: start: 20230112
  4. INFLIXIMAB [Suspect]
     Active Substance: INFLIXIMAB
     Dosage: 320 MG 6 WEEKLY (ROUTE: INJECTION, REMSIMA 1MG BAXTER)
     Route: 050

REACTIONS (3)
  - Crohn^s disease [Unknown]
  - Intentional dose omission [Unknown]
  - Intentional product use issue [Unknown]
